FAERS Safety Report 14888808 (Version 6)
Quarter: 2020Q1

REPORT INFORMATION
  Report Type: Report from Study
  Country: None (occurrence: US)
  Receive Date: 20180513
  Receipt Date: 20200308
  Transmission Date: 20200409
  Serious: Yes (Other)
  Sender: FDA-Public Use
  Company Number: US-ABBVIE-18K-163-2318468-00

PATIENT
  Age: 58 Year
  Sex: Female
  Weight: 54.48 kg

DRUGS (5)
  1. HUMIRA [Suspect]
     Active Substance: ADALIMUMAB
     Indication: ANKYLOSING SPONDYLITIS
     Route: 058
  2. HUMIRA [Suspect]
     Active Substance: ADALIMUMAB
     Indication: ARTHRITIS
  3. HUMIRA [Suspect]
     Active Substance: ADALIMUMAB
     Indication: COLITIS ULCERATIVE
  4. HUMIRA [Suspect]
     Active Substance: ADALIMUMAB
     Indication: RHEUMATOID ARTHRITIS
  5. POLYURETHANE [Suspect]
     Active Substance: POLYURETHANE
     Indication: PRODUCT USED FOR UNKNOWN INDICATION
     Route: 065

REACTIONS (28)
  - Gastrointestinal oedema [Unknown]
  - Incorrect dose administered [Recovered/Resolved]
  - Colitis [Unknown]
  - Malaise [Unknown]
  - Wound [Unknown]
  - Back pain [Unknown]
  - Alopecia [Unknown]
  - Chemical poisoning [Unknown]
  - Gastrointestinal disorder [Unknown]
  - Nausea [Unknown]
  - Blood pressure abnormal [Unknown]
  - Blister [Unknown]
  - Rheumatoid arthritis [Unknown]
  - Device issue [Recovered/Resolved]
  - Malaise [Unknown]
  - Depression [Recovering/Resolving]
  - Gallbladder polyp [Unknown]
  - Musculoskeletal disorder [Unknown]
  - Blood viscosity decreased [Recovered/Resolved]
  - Back disorder [Recovering/Resolving]
  - Haemorrhagic diathesis [Recovered/Resolved]
  - Diarrhoea [Unknown]
  - Vomiting [Unknown]
  - Arthralgia [Unknown]
  - Drug ineffective [Recovering/Resolving]
  - Weight decreased [Unknown]
  - Artificial crown procedure [Unknown]
  - Injection site pain [Unknown]

NARRATIVE: CASE EVENT DATE: 201802
